FAERS Safety Report 6977770-1 (Version None)
Quarter: 2010Q3

REPORT INFORMATION
  Report Type: 
  Country: None (occurrence: None)
  Receive Date: 20100913
  Receipt Date: 20100901
  Transmission Date: 20110219
  Serious: No
  Sender: FDA-Public Use
  Company Number: US-BIOGENIDEC-2010BI031072

PATIENT
  Age: 61 Year
  Sex: Female

DRUGS (1)
  1. TYSABRI [Suspect]
     Indication: MULTIPLE SCLEROSIS
     Route: 042
     Dates: start: 20071001

REACTIONS (10)
  - BALANCE DISORDER [None]
  - BLADDER SPASM [None]
  - CYSTITIS [None]
  - DYSSTASIA [None]
  - HERPES OPHTHALMIC [None]
  - NASOPHARYNGITIS [None]
  - RENAL CYST [None]
  - SECRETION DISCHARGE [None]
  - URINARY INCONTINENCE [None]
  - URINARY RETENTION [None]
